FAERS Safety Report 9117114 (Version 1)
Quarter: 2013Q1

REPORT INFORMATION
  Report Type: Spontaneous
  Country: BR (occurrence: BR)
  Receive Date: 20130225
  Receipt Date: 20130225
  Transmission Date: 20140127
  Serious: Yes (Other)
  Sender: FDA-Public Use
  Company Number: BR-ACCORD-016569

PATIENT
  Age: 64 Year
  Sex: Female
  Weight: 95.3 kg

DRUGS (11)
  1. PACLITAXEL [Suspect]
     Indication: BREAST CANCER
     Route: 042
     Dates: start: 20121221, end: 20121221
  2. DEXAMETHASONE [Concomitant]
     Route: 042
     Dates: start: 20121221, end: 20121221
  3. CLONAZEPAM [Concomitant]
     Route: 048
  4. ATENOLOL [Concomitant]
     Route: 048
  5. RANITIDINE [Concomitant]
     Route: 042
     Dates: start: 20121221, end: 20121221
  6. DIPHENHYDRAMINE [Concomitant]
     Route: 042
     Dates: start: 20121221, end: 20121221
  7. PURAN T4 [Concomitant]
     Route: 048
  8. ONDANSETRON [Concomitant]
     Route: 042
     Dates: start: 20121221, end: 20121221
  9. LOSARTAN [Concomitant]
     Route: 048
  10. FLUOXETINE [Concomitant]
     Route: 048
  11. PANTOPRAZOLE [Concomitant]
     Route: 048

REACTIONS (2)
  - Cough [Recovered/Resolved]
  - Erythema [Recovered/Resolved]
